FAERS Safety Report 22643835 (Version 5)
Quarter: 2024Q3

REPORT INFORMATION
  Report Type: Spontaneous
  Country: BR (occurrence: BR)
  Receive Date: 20230627
  Receipt Date: 20240902
  Transmission Date: 20241016
  Serious: Yes (Hospitalization)
  Sender: ROCHE
  Company Number: BR-ROCHE-3373022

PATIENT
  Age: 22 Year
  Sex: Male

DRUGS (1)
  1. EMICIZUMAB [Suspect]
     Active Substance: EMICIZUMAB
     Indication: Factor VIII deficiency
     Dosage: 1,5 MG PER KG, 7 IN 7 DAYS
     Route: 065

REACTIONS (3)
  - Gun shot wound [Recovered/Resolved]
  - Perforation [Recovered/Resolved]
  - Haemoglobin decreased [Unknown]
